FAERS Safety Report 4911895-7 (Version None)
Quarter: 2006Q1

REPORT INFORMATION
  Report Type: 
  Country: None (occurrence: None)
  Receive Date: 20060213
  Receipt Date: 20060213
  Transmission Date: 20060701
  Serious: No
  Sender: FDA-Public Use
  Company Number: None

PATIENT
  Age: 41 Year
  Sex: Female
  Weight: 112.0385 kg

DRUGS (4)
  1. DURAGESIC-100 [Suspect]
     Indication: PAIN
     Dosage: 100 PATCH
     Route: 062
     Dates: start: 20060203
  2. DURAGESIC-50 [Suspect]
     Dosage: 50 PATCH
     Route: 062
     Dates: start: 20060213
  3. METHADONE DISKETTE [Concomitant]
  4. ACTIQ [Concomitant]

REACTIONS (2)
  - INADEQUATE ANALGESIA [None]
  - PHARMACEUTICAL PRODUCT COMPLAINT [None]
